FAERS Safety Report 4838547-6 (Version None)
Quarter: 2005Q4

REPORT INFORMATION
  Report Type: 
  Country: None (occurrence: None)
  Receive Date: 20051129
  Receipt Date: 20041214
  Transmission Date: 20060501
  Serious: Yes (Other)
  Sender: FDA-Public Use
  Company Number: US-AVENTIS-200419617US

PATIENT
  Sex: Male
  Weight: 70 kg

DRUGS (3)
  1. CARAC [Suspect]
     Indication: ACTINIC KERATOSIS
     Dosage: DOSE: 0.5%
     Route: 061
     Dates: start: 20031202, end: 20031231
  2. LOVASTATIN [Concomitant]
     Indication: HYPERCHOLESTEROLAEMIA
     Route: 048
     Dates: start: 20030901
  3. LIDOCAINE 1% [Concomitant]
     Dates: start: 20041209, end: 20041209

REACTIONS (1)
  - BASAL CELL CARCINOMA [None]
